FAERS Safety Report 11704155 (Version 1)
Quarter: 2015Q4

REPORT INFORMATION
  Report Type: Spontaneous
  Country: US (occurrence: US)
  Receive Date: 20151106
  Receipt Date: 20151106
  Transmission Date: 20160304
  Serious: Yes (Other)
  Sender: FDA-Public Use
  Company Number: PHEH2015US022331

PATIENT
  Sex: Female

DRUGS (1)
  1. GLEEVEC [Suspect]
     Active Substance: IMATINIB MESYLATE
     Indication: GASTROINTESTINAL STROMAL TUMOUR
     Dosage: 400 MG, PER DAY
     Route: 065
     Dates: start: 201311, end: 201403

REACTIONS (11)
  - Drug hypersensitivity [Unknown]
  - Splenic haemorrhage [Recovered/Resolved]
  - Recurrent cancer [Unknown]
  - Cardiopulmonary failure [Recovered/Resolved]
  - Haematemesis [Recovered/Resolved]
  - Gastrointestinal stromal tumour [Unknown]
  - Pulmonary fibrosis [Unknown]
  - Gastric perforation [Recovered/Resolved]
  - Hypovolaemic shock [Recovered/Resolved]
  - Abdominal abscess [Recovered/Resolved]
  - Cardiac failure congestive [Unknown]
